FAERS Safety Report 6224734-1 (Version None)
Quarter: 2009Q2

REPORT INFORMATION
  Report Type: 
  Country: None (occurrence: None)
  Receive Date: 20090612
  Receipt Date: 20090415
  Transmission Date: 20091009
  Serious: No
  Sender: FDA-Public Use
  Company Number: US-ABBOTT-09P-163-0565130-00

PATIENT
  Sex: Female
  Weight: 49.94 kg

DRUGS (8)
  1. HUMIRA [Suspect]
     Indication: PSORIASIS
     Route: 058
     Dates: start: 20090307, end: 20090320
  2. SULAR [Concomitant]
     Indication: HYPERTENSION
     Route: 048
  3. BENICAR HCT [Concomitant]
     Indication: HYPERTENSION
     Dosage: 40/25MG
     Route: 048
  4. METOPROLOL SUCCINATE EXTENDED RELEASE [Concomitant]
     Indication: HYPERTENSION
     Route: 048
  5. BUPROPION HCL [Concomitant]
     Indication: EX-TOBACCO USER
     Route: 048
  6. OLIVE LEAF EXTRACT [Concomitant]
     Indication: DRUG USE FOR UNKNOWN INDICATION
     Route: 048
  7. SALMON OIL [Concomitant]
     Indication: DRUG USE FOR UNKNOWN INDICATION
  8. PROBIOTICS BIOBEADS [Concomitant]
     Indication: DRUG USE FOR UNKNOWN INDICATION

REACTIONS (4)
  - ERYTHEMA [None]
  - PRURITUS [None]
  - RASH [None]
  - RASH MACULAR [None]
